FAERS Safety Report 24332885 (Version 1)
Quarter: 2024Q3

REPORT INFORMATION
  Report Type: Spontaneous
  Country: EG (occurrence: EG)
  Receive Date: 20240918
  Receipt Date: 20240918
  Transmission Date: 20241017
  Serious: Yes (Hospitalization, Other)
  Sender: PFIZER
  Company Number: EG-PFIZER INC-PV202400121165

PATIENT
  Age: 37 Year
  Sex: Female
  Weight: 75 kg

DRUGS (6)
  1. CARBOPLATIN [Suspect]
     Active Substance: CARBOPLATIN
     Indication: Breast cancer female
     Dosage: UNK
     Route: 042
     Dates: start: 20240722
  2. PACLITAXEL [Suspect]
     Active Substance: PACLITAXEL
     Indication: Breast cancer female
     Dosage: UNK
     Route: 042
     Dates: start: 20240722
  3. ONDAMETIC [Concomitant]
  4. PIRAFENE [Concomitant]
  5. DEXAMETHASONE [Concomitant]
     Active Substance: DEXAMETHASONE
  6. ZOMEGIPRAL [Concomitant]

REACTIONS (5)
  - Anaphylactic shock [Recovered/Resolved]
  - Angina pectoris [Recovered/Resolved]
  - Erythema [Recovered/Resolved]
  - Bronchospasm [Recovered/Resolved]
  - Off label use [Unknown]

NARRATIVE: CASE EVENT DATE: 20240722
